FAERS Safety Report 26089219 (Version 1)
Quarter: 2025Q4

REPORT INFORMATION
  Report Type: Spontaneous
  Country: US (occurrence: US)
  Receive Date: 20251125
  Receipt Date: 20251125
  Transmission Date: 20260117
  Serious: No
  Sender: SANOFI AVENTIS
  Company Number: US-SA-2025SA349696

PATIENT
  Age: 78 Year
  Sex: Female

DRUGS (3)
  1. REZUROCK [Suspect]
     Active Substance: BELUMOSUDIL
     Indication: Graft versus host disease
     Dosage: 200 MG, QD
     Route: 048
     Dates: start: 20251104
  2. PREDNISONE [Concomitant]
     Active Substance: PREDNISONE
     Dosage: UNK
  3. PREDNISONE [Concomitant]
     Active Substance: PREDNISONE
     Dosage: 20MG ONE DAY AND 10MG THE NEXT DAY, ALTERNATING
     Dates: start: 202511

REACTIONS (2)
  - Stress [Unknown]
  - Oedema peripheral [Unknown]

NARRATIVE: CASE EVENT DATE: 20251101
